FAERS Safety Report 8307674 (Version 2)
Quarter: 2013Q3

REPORT INFORMATION
  Report Type: Spontaneous
  Country: US (occurrence: US)
  Receive Date: 20111222
  Receipt Date: 20130822
  Transmission Date: 20140515
  Serious: Yes (Hospitalization, Other)
  Sender: FDA-Public Use
  Company Number: US-ROCHE-793660

PATIENT
  Age: 15 Year
  Sex: Male
  Weight: 86.26 kg

DRUGS (4)
  1. ACCUTANE [Suspect]
     Indication: ACNE
     Route: 065
     Dates: start: 1997, end: 19990909
  2. ACCUTANE [Suspect]
     Dosage: 20 MG AM AND 40 MG PM
     Route: 065
     Dates: start: 19991111, end: 200002
  3. ACCUTANE [Suspect]
     Dosage: 20 MG IN MORNING WITH FOOD
     Route: 065
  4. ACCUTANE [Suspect]
     Route: 065

REACTIONS (12)
  - Gastrointestinal haemorrhage [Unknown]
  - Crohn^s disease [Unknown]
  - Colitis ulcerative [Unknown]
  - Inflammatory bowel disease [Unknown]
  - Irritable bowel syndrome [Unknown]
  - Depression [Unknown]
  - Emotional distress [Unknown]
  - Suicidal ideation [Unknown]
  - Blood cholesterol increased [Unknown]
  - Blood alkaline phosphatase increased [Unknown]
  - Blood triglycerides increased [Unknown]
  - Nausea [Recovered/Resolved]
